FAERS Safety Report 21776820 (Version 4)
Quarter: 2023Q2

REPORT INFORMATION
  Report Type: Spontaneous
  Country: US (occurrence: US)
  Receive Date: 20221226
  Receipt Date: 20230510
  Transmission Date: 20230722
  Serious: Yes (Hospitalization, Other)
  Sender: FDA-Public Use
  Company Number: US-BRISTOL-MYERS SQUIBB COMPANY-2022-157054

PATIENT
  Age: 69 Year
  Sex: Male

DRUGS (1)
  1. POMALYST [Suspect]
     Active Substance: POMALIDOMIDE
     Indication: Dementia
     Dosage: TAKE 1 CAPSULE BY MOUTH DAILY ON AN EMPTY STOMACH
     Route: 048
     Dates: start: 20220916

REACTIONS (4)
  - Bacteraemia [Not Recovered/Not Resolved]
  - Transient ischaemic attack [Recovering/Resolving]
  - Arthralgia [Not Recovered/Not Resolved]
  - Spinal pain [Not Recovered/Not Resolved]

NARRATIVE: CASE EVENT DATE: 20230409
